FAERS Safety Report 7346302-0 (Version None)
Quarter: 2011Q1

REPORT INFORMATION
  Report Type: 
  Country: None (occurrence: None)
  Receive Date: 20110228
  Receipt Date: 20110221
  Transmission Date: 20110831
  Serious: Yes (Other)
  Sender: FDA-Public Use
  Company Number: PHHY2010IT32508

PATIENT
  Age: 86 Year
  Sex: Female

DRUGS (2)
  1. VISUDYNE [Suspect]
     Indication: CHOROIDAL NEOVASCULARISATION
  2. KENALOG [Suspect]
     Indication: CHOROIDAL NEOVASCULARISATION
     Dosage: 4 MG ONCE EY

REACTIONS (6)
  - VISION BLURRED [None]
  - DETACHMENT OF RETINAL PIGMENT EPITHELIUM [None]
  - RETINAL PIGMENT EPITHELIAL TEAR [None]
  - METAMORPHOPSIA [None]
  - CHOROIDAL NEOVASCULARISATION [None]
  - VITREOUS HAEMORRHAGE [None]
